FAERS Safety Report 5369906-3 (Version None)
Quarter: 2007Q2

REPORT INFORMATION
  Report Type: 
  Country: None (occurrence: None)
  Receive Date: 20070620
  Receipt Date: 20070608
  Transmission Date: 20071010
  Serious: Yes (Hospitalization)
  Sender: FDA-Public Use
  Company Number: B0475087A

PATIENT
  Age: 29 Year
  Sex: Male

DRUGS (7)
  1. LITHIUM CARBONATE [Suspect]
  2. FLUDROCORTISONE ACETATE [Suspect]
  3. PERICYAZINE [Concomitant]
  4. LORAZEPAM [Concomitant]
  5. HYDROCORTISONE [Concomitant]
  6. HALOPERIDOL [Concomitant]
  7. PREDNISONE [Concomitant]

REACTIONS (21)
  - ABDOMINAL DISCOMFORT [None]
  - ADDISON'S DISEASE [None]
  - ADRENOCORTICAL INSUFFICIENCY ACUTE [None]
  - ANOREXIA [None]
  - ASTHENIA [None]
  - AUTOIMMUNE DISORDER [None]
  - CONDITION AGGRAVATED [None]
  - DEHYDRATION [None]
  - DIZZINESS [None]
  - DRUG RESISTANCE [None]
  - GASTROENTERITIS [None]
  - GRAND MAL CONVULSION [None]
  - HYPOMANIA [None]
  - HYPONATRAEMIA [None]
  - HYPOTHYROIDISM [None]
  - LEUKOCYTOSIS [None]
  - MUCOSAL DISCOLOURATION [None]
  - SKIN HYPERPIGMENTATION [None]
  - STRESS [None]
  - STUPOR [None]
  - VOMITING [None]
